FAERS Safety Report 15232232 (Version 2)
Quarter: 2018Q3

REPORT INFORMATION
  Report Type: Spontaneous
  Country: US (occurrence: US)
  Receive Date: 20180802
  Receipt Date: 20180912
  Transmission Date: 20181010
  Serious: No
  Sender: FDA-Public Use
  Company Number: US-PFIZER INC-2018305479

PATIENT
  Age: 50 Year
  Sex: Female
  Weight: 64.85 kg

DRUGS (5)
  1. PPD TUBERCULIN MAMMALIAN [Concomitant]
     Indication: TUBERCULIN TEST
     Dosage: UNK (RECEIVED WHATEVER THE NORMAL DOSE GIVEN WITH A TB OR DIABETIC SYRINGE IS)
     Dates: start: 20180723
  2. ADVIL LIQUI?GELS [Suspect]
     Active Substance: IBUPROFEN
     Indication: PAIN
     Dosage: 1000 MG, DAILY (2 IN THE MORNING AND 3 IN THE EVENING)
  3. ADVIL LIQUI?GELS [Suspect]
     Active Substance: IBUPROFEN
     Indication: PAIN
     Dosage: 600 MG, UNK (THREE 200MG)
     Route: 048
     Dates: start: 20180726
  4. ADVIL LIQUI?GELS [Suspect]
     Active Substance: IBUPROFEN
     Indication: MIGRAINE
  5. KLONOPIN [Concomitant]
     Active Substance: CLONAZEPAM
     Indication: ANXIETY
     Dosage: 0.5 MG, AS NEEDED [PRN]
     Route: 048

REACTIONS (7)
  - Dyspepsia [Recovered/Resolved]
  - Product odour abnormal [Unknown]
  - Panic attack [Unknown]
  - Poor quality drug administered [Unknown]
  - Burn oesophageal [Recovered/Resolved]
  - Tongue discomfort [Recovered/Resolved]
  - Heart rate increased [Unknown]

NARRATIVE: CASE EVENT DATE: 201807
